FAERS Safety Report 4653309-0 (Version None)
Quarter: 2005Q2

REPORT INFORMATION
  Report Type: 
  Country: None (occurrence: None)
  Receive Date: 20050505
  Receipt Date: 20050428
  Transmission Date: 20051028
  Serious: Yes (Hospitalization)
  Sender: FDA-Public Use
  Company Number: US-BRISTOL-MYERS SQUIBB COMPANY-12949038

PATIENT
  Age: 54 Year
  Sex: Male

DRUGS (4)
  1. CETUXIMAB [Suspect]
     Indication: COLON CANCER STAGE III
     Dosage: FIRST DOSE. 400MG/M2 (LD), 250MG/M2 THEREAFTER (TD ADMIN THIS COURSE=517MG).
     Route: 042
     Dates: start: 20050415, end: 20050415
  2. IRINOTECAN HCL [Suspect]
     Indication: COLON CANCER STAGE III
     Dosage: INITIATED 15-APR-2005. TD ADMIN THIS COURSE=373MG.
     Route: 042
     Dates: start: 20050415, end: 20050415
  3. LEUCOVORIN CALCIUM [Suspect]
     Indication: COLON CANCER STAGE III
     Dosage: INITIATED 15-APR-2005. (TD ADMIN THIS COURSE=828MG).
     Route: 042
     Dates: start: 20050415, end: 20050415
  4. FLUOROURACIL [Suspect]
     Indication: COLON CANCER STAGE III
     Dosage: INITIATED 15-APR-2005 (2400MG/M2 BOLUS). (TD ADMIN THIS COURSE=5796MG).
     Route: 042
     Dates: start: 20050417, end: 20050417

REACTIONS (4)
  - CONFUSIONAL STATE [None]
  - PERIPHERAL MOTOR NEUROPATHY [None]
  - PERIPHERAL SENSORY NEUROPATHY [None]
  - SPEECH DISORDER [None]
